FAERS Safety Report 15893055 (Version 1)
Quarter: 2019Q1

REPORT INFORMATION
  Report Type: Report from Study
  Country: US (occurrence: US)
  Receive Date: 20190130
  Receipt Date: 20190130
  Transmission Date: 20190417
  Serious: No
  Sender: FDA-Public Use
  Company Number: US-EXELIXIS-CABO-18016953

PATIENT
  Sex: Female

DRUGS (1)
  1. CABOMETYX [Suspect]
     Active Substance: CABOZANTINIB S-MALATE
     Indication: RENAL CANCER
     Dosage: 40 MG, QD
     Route: 048
     Dates: start: 20181018

REACTIONS (5)
  - Dyspepsia [Unknown]
  - Insomnia [Unknown]
  - Asthenia [Unknown]
  - Nausea [Unknown]
  - Stomatitis [Unknown]

NARRATIVE: CASE EVENT DATE: 2018
